FAERS Safety Report 20405878 (Version 1)
Quarter: 2022Q1

REPORT INFORMATION
  Report Type: Spontaneous
  Country: CZ (occurrence: CZ)
  Receive Date: 20220131
  Receipt Date: 20220131
  Transmission Date: 20220423
  Serious: Yes (Death, Other)
  Sender: FDA-Public Use
  Company Number: CZ-AMGEN-CZESP2022013699

PATIENT
  Age: 59 Year
  Sex: Male

DRUGS (7)
  1. VECTIBIX [Suspect]
     Active Substance: PANITUMUMAB
     Indication: Colorectal cancer metastatic
     Dosage: 6 MILLIGRAM/KILOGRAM, Q2WK
     Route: 065
  2. FLUOROURACIL [Suspect]
     Active Substance: FLUOROURACIL
     Indication: Rectal cancer
     Dosage: UNK
     Route: 065
  3. LEUCOVORIN [Suspect]
     Active Substance: LEUCOVORIN
     Indication: Rectal cancer
     Dosage: UNK
     Route: 065
  4. OXALIPLATIN [Suspect]
     Active Substance: OXALIPLATIN
     Indication: Rectal cancer
     Route: 065
  5. TRIFLURIDINE [Suspect]
     Active Substance: TRIFLURIDINE
     Indication: Rectal cancer
     Dosage: UNK
     Route: 065
     Dates: start: 202011
  6. IRINOTECAN [Suspect]
     Active Substance: IRINOTECAN
     Indication: Colorectal cancer metastatic
     Dosage: UNK
     Route: 065
     Dates: start: 2020
  7. ZALTRAP [Suspect]
     Active Substance: ZIV-AFLIBERCEPT
     Indication: Colorectal cancer metastatic
     Dosage: 4 MILLIGRAM/KILOGRAM
     Route: 065

REACTIONS (5)
  - Death [Fatal]
  - Colorectal cancer metastatic [Unknown]
  - Hypertrichosis [Unknown]
  - Rash [Unknown]
  - Paronychia [Unknown]

NARRATIVE: CASE EVENT DATE: 20200401
